FAERS Safety Report 16276892 (Version 3)
Quarter: 2019Q3

REPORT INFORMATION
  Report Type: Spontaneous
  Country: US (occurrence: US)
  Receive Date: 20190506
  Receipt Date: 20190705
  Transmission Date: 20191004
  Serious: Yes (Death)
  Sender: FDA-Public Use
  Company Number: US-PFIZER INC-2019186555

PATIENT
  Age: 74 Year
  Sex: Female
  Weight: 63 kg

DRUGS (32)
  1. REMODULIN [Suspect]
     Active Substance: TREPROSTINIL
     Indication: PULMONARY ARTERIAL HYPERTENSION
     Dosage: 58 NG/KG/MIN CONTINUOUS INFUSION
     Route: 042
     Dates: start: 20100412
  2. TYLENOL [Concomitant]
     Active Substance: ACETAMINOPHEN
     Dosage: 1300 MG, AS NEEDED[2 TAB, PO, Q6H, PRN(AS NEEDED)]
     Route: 048
  3. LIPITOR [Concomitant]
     Active Substance: ATORVASTATIN CALCIUM
     Dosage: 10 MG, 1X/DAY QPM (EVERY AFTERNOON OR EVENING)
     Route: 048
  4. PROAMATINE [Concomitant]
     Active Substance: MIDODRINE HYDROCHLORIDE
     Dosage: 20 MG, 3X/DAY[10 MG: 2 TAB]
     Route: 048
  5. SYNTHROID [Concomitant]
     Active Substance: LEVOTHYROXINE SODIUM
     Dosage: 88 UG, DAILY
     Route: 048
  6. ZOFRAN ODT [Concomitant]
     Active Substance: ONDANSETRON HYDROCHLORIDE
     Dosage: 4 MG, AS NEEDED[1 SL TAB, PO, Q8H, PRN][1 TAB PO TID PRN]
     Route: 048
  7. XANAX [Concomitant]
     Active Substance: ALPRAZOLAM
     Indication: DEPRESSION
     Dosage: 0.25 MG, 3X/DAY
     Route: 048
  8. COLACE [Concomitant]
     Active Substance: DOCUSATE SODIUM
     Dosage: 100 MG, 2X/DAY
     Route: 048
  9. DILTIAZEM. [Concomitant]
     Active Substance: DILTIAZEM
     Dosage: UNK
  10. LIPITOR [Concomitant]
     Active Substance: ATORVASTATIN CALCIUM
     Dosage: 10 MG, DAILY
     Route: 048
  11. OPSUMIT [Suspect]
     Active Substance: MACITENTAN
     Dosage: 10 MG, DAILY
     Dates: end: 20190425
  12. WARFARIN [Concomitant]
     Active Substance: WARFARIN
     Dosage: 5 MG, ALTERNATE DAY
     Route: 048
  13. MAXIPIME [Concomitant]
     Active Substance: CEFEPIME HYDROCHLORIDE
     Dosage: UNK
  14. LANOXIN [Concomitant]
     Active Substance: DIGOXIN
     Dosage: 0.125 MG, 2X/WEEK [0.0625 MG: 0.5 , TU/TH]
     Route: 048
  15. ZAROXOLYN [Concomitant]
     Active Substance: METOLAZONE
     Dosage: 5 MG, 2X/DAY
     Route: 048
  16. DESYREL [Concomitant]
     Active Substance: TRAZODONE HYDROCHLORIDE
     Dosage: 50 MG, 1X/DAY[QHS(BED TIME)]
     Route: 048
  17. REVATIO [Suspect]
     Active Substance: SILDENAFIL CITRATE
     Dosage: 20 MG, 3X/DAY
     Dates: end: 20190425
  18. WARFARIN [Concomitant]
     Active Substance: WARFARIN
     Dosage: 7.5 MG, UNK (1.5 TAB, PO, TU/F)
     Route: 048
  19. LANOXIN [Concomitant]
     Active Substance: DIGOXIN
     Dosage: 125 UG, UNK
     Route: 048
  20. CYMBALTA [Concomitant]
     Active Substance: DULOXETINE HYDROCHLORIDE
     Dosage: 60 MG, DAILY
     Route: 048
  21. CYMBALTA [Concomitant]
     Active Substance: DULOXETINE HYDROCHLORIDE
     Dosage: 60 MG, DAILY
     Route: 048
  22. LASIX [Concomitant]
     Active Substance: FUROSEMIDE
     Dosage: 80 MG, 2X/DAY
     Route: 048
  23. PRILOSEC [Concomitant]
     Active Substance: OMEPRAZOLE MAGNESIUM
     Dosage: 40 MG, 2X/DAY
     Route: 048
  24. PROCRIT [Concomitant]
     Active Substance: ERYTHROPOIETIN
     Dosage: 1 ML, WEEKLY (,  1 ML, SUBQ, WEEKLY-THUR )
     Route: 058
  25. LASIX [Concomitant]
     Active Substance: FUROSEMIDE
     Dosage: 80 MG, ALTERNATE DAY[TU/TH/SAT/SUN]
     Route: 048
  26. MORPHINE [Concomitant]
     Active Substance: MORPHINE
     Dosage: 0.5 ML, AS NEEDED
     Route: 048
  27. REMODULIN [Suspect]
     Active Substance: TREPROSTINIL
     Dosage: 62NG/KG/MIN (80 KG DOSING WEIGHT)
     Route: 042
  28. ZOFRAN [Concomitant]
     Active Substance: ONDANSETRON HYDROCHLORIDE
     Dosage: 2 MG, AS NEEDED[2 ML, IV PUSH, Q4H, PRN]
     Route: 042
  29. OCEAN SALINE NASAL SPRAY [Concomitant]
     Active Substance: SODIUM CHLORIDE
     Dosage: 1 DF, AS NEEDED ( 1 SPRAY, RIGHT NOSTRIL, QID, PRN (AS NEEDED))
     Route: 045
  30. MIRALAX [Concomitant]
     Active Substance: POLYETHYLENE GLYCOL 3350
     Dosage: 17 G, DAILY
     Route: 048
  31. TREPROSTINIL. [Concomitant]
     Active Substance: TREPROSTINIL
     Dosage: UNK  (8 MG [54 NG/KG/MIN] PLUS FLOLAN STERILE DILUENT (NPAH) 100 ML )
  32. EPOGEN [Concomitant]
     Active Substance: ERYTHROPOIETIN
     Dosage: 1 ML, WEEKLY (40000 UNIT,  1 ML, SUBQ, WEEKLY-THUR )
     Route: 058

REACTIONS (5)
  - Staphylococcal bacteraemia [Fatal]
  - Blood pressure abnormal [Unknown]
  - Pulmonary hypertension [Fatal]
  - Endocarditis [Fatal]
  - End stage renal disease [Fatal]
